FAERS Safety Report 23818959 (Version 1)
Quarter: 2024Q2

REPORT INFORMATION
  Report Type: Spontaneous
  Country: DE (occurrence: DE)
  Receive Date: 20240506
  Receipt Date: 20240506
  Transmission Date: 20240715
  Serious: Yes (Hospitalization, Other)
  Sender: FDA-Public Use
  Company Number: DE-MENARINI-DE-MEN-093974

PATIENT
  Age: 95 Year
  Sex: Female

DRUGS (8)
  1. CAPTOPRIL [Suspect]
     Active Substance: CAPTOPRIL
     Indication: Product used for unknown indication
     Dosage: CAPTOPRIL 50 MG 1-0-0-0
     Route: 065
  2. METOPROLOL [Suspect]
     Active Substance: METOPROLOL
     Indication: Product used for unknown indication
     Dosage: METOPROLOL 50 MG 1-0-0-0
     Route: 065
  3. MIRTAZAPINE [Suspect]
     Active Substance: MIRTAZAPINE
     Indication: Product used for unknown indication
     Dosage: 15 MG, Q24H
     Route: 065
  4. PIPAMPERONE [Suspect]
     Active Substance: PIPAMPERONE
     Indication: Product used for unknown indication
     Dosage: PIPAMPERONE 20 MG AS NEEDED
     Route: 065
  5. RIVAROXABAN [Suspect]
     Active Substance: RIVAROXABAN
     Indication: Product used for unknown indication
     Dosage: RIVAROXABAN 15 MG 1-0-0-0
     Route: 065
  6. RISPERIDONE [Suspect]
     Active Substance: RISPERIDONE
     Indication: Product used for unknown indication
     Dosage: RISPERIDONE 0.25 MG 0-0-0-1
     Route: 065
  7. SIMVASTATIN [Suspect]
     Active Substance: SIMVASTATIN
     Indication: Product used for unknown indication
     Dosage: SIMVASTATIN 20 MG 0-0-1-0
     Route: 065
  8. TORSEMIDE [Suspect]
     Active Substance: TORSEMIDE
     Indication: Product used for unknown indication
     Dosage: TORASEMIDE 10 MG 1-0-1-0
     Route: 065

REACTIONS (3)
  - Blood electrolytes decreased [Unknown]
  - Delirium [Unknown]
  - Dehydration [Unknown]
